FAERS Safety Report 6463388-6 (Version None)
Quarter: 2009Q4

REPORT INFORMATION
  Report Type: 
  Country: None (occurrence: None)
  Receive Date: 20091201
  Receipt Date: 20090827
  Transmission Date: 20100525
  Serious: Yes (Hospitalization)
  Sender: FDA-Public Use
  Company Number: US-AMGEN-QUU362085

PATIENT
  Sex: Male

DRUGS (2)
  1. ENBREL [Suspect]
     Indication: PSORIASIS
     Route: 058
     Dates: start: 20090618
  2. METHOTREXATE [Concomitant]
     Dates: start: 20090618

REACTIONS (4)
  - CELLULITIS [None]
  - GASTRIC DISORDER [None]
  - INJECTION SITE PAIN [None]
  - PSORIASIS [None]
